FAERS Safety Report 12462661 (Version 1)
Quarter: 2016Q2

REPORT INFORMATION
  Report Type: Report from Study
  Country: US (occurrence: US)
  Receive Date: 20160614
  Receipt Date: 20160614
  Transmission Date: 20160815
  Serious: Yes (Hospitalization, Other)
  Sender: FDA-Public Use
  Company Number: US-ABBVIE-16K-163-1646453-00

PATIENT
  Age: 56 Year
  Sex: Male
  Weight: 96.25 kg

DRUGS (9)
  1. SODIUM BICARBONATE. [Concomitant]
     Active Substance: SODIUM BICARBONATE
     Indication: BLOOD SODIUM DECREASED
  2. HUMIRA [Suspect]
     Active Substance: ADALIMUMAB
     Route: 058
     Dates: start: 201601
  3. K-PHOS NEUTRAL [Concomitant]
     Active Substance: POTASSIUM PHOSPHATE\SODIUM PHOSPHATE
     Indication: BLOOD PHOSPHORUS DECREASED
  4. LORAZEPAM. [Concomitant]
     Active Substance: LORAZEPAM
     Indication: ANXIETY
  5. CYMBALTA [Concomitant]
     Active Substance: DULOXETINE HYDROCHLORIDE
     Indication: DEPRESSION
  6. TRAZODONE [Concomitant]
     Active Substance: TRAZODONE HYDROCHLORIDE
     Indication: SLEEP DISORDER THERAPY
  7. VITAMIN B12 [Concomitant]
     Active Substance: CYANOCOBALAMIN
     Indication: VITAMIN B COMPLEX DEFICIENCY
     Route: 050
  8. HUMIRA [Suspect]
     Active Substance: ADALIMUMAB
     Indication: CROHN^S DISEASE
     Route: 058
     Dates: start: 20150903, end: 201512
  9. VITAMIN D3 [Concomitant]
     Active Substance: CHOLECALCIFEROL
     Indication: VITAMIN D DECREASED

REACTIONS (7)
  - Urinary tract infection [Recovering/Resolving]
  - Rectal spasm [Not Recovered/Not Resolved]
  - Hypotonic urinary bladder [Recovering/Resolving]
  - Micturition urgency [Not Recovered/Not Resolved]
  - Diarrhoea [Not Recovered/Not Resolved]
  - Prostatomegaly [Recovered/Resolved]
  - Dysuria [Recovering/Resolving]

NARRATIVE: CASE EVENT DATE: 201604
